FAERS Safety Report 5677858-1 (Version None)
Quarter: 2008Q1

REPORT INFORMATION
  Report Type: 
  Country: None (occurrence: None)
  Receive Date: 20080319
  Receipt Date: 20080311
  Transmission Date: 20080703
  Serious: Yes (Other)
  Sender: FDA-Public Use
  Company Number: 2007338434

PATIENT
  Sex: Female

DRUGS (1)
  1. LISTERINE WHITENING QUICK DISSOLVING STRIPS (NO ACTIVE INGREDIENTS) [Suspect]
     Indication: DENTAL CARE
     Dosage: AS DIRECTED, TWICE DAILY, ORAL
     Route: 048
     Dates: start: 20071201, end: 20071223

REACTIONS (8)
  - APHTHOUS STOMATITIS [None]
  - BURNING SENSATION [None]
  - INFECTION [None]
  - INSOMNIA [None]
  - LIP ULCERATION [None]
  - MOUTH HAEMORRHAGE [None]
  - ORAL DISCOMFORT [None]
  - PAIN [None]
